FAERS Safety Report 25764564 (Version 1)
Quarter: 2025Q3

REPORT INFORMATION
  Report Type: Spontaneous
  Country: US (occurrence: US)
  Receive Date: 20250905
  Receipt Date: 20250905
  Transmission Date: 20251020
  Serious: No
  Sender: DOMPE FARMACEUTICI
  Company Number: US-FARMAPROD-202501-0191

PATIENT
  Age: 71 Year
  Sex: Male

DRUGS (31)
  1. OXERVATE [Suspect]
     Active Substance: CENEGERMIN-BKBJ
     Indication: Neurotrophic keratopathy
     Route: 047
     Dates: start: 20250115
  2. FLUOROMETHOLONE [Concomitant]
     Active Substance: FLUOROMETHOLONE
  3. KLOR-CON M20 [Concomitant]
     Active Substance: POTASSIUM CHLORIDE
  4. VASCEPA [Concomitant]
     Active Substance: ICOSAPENT ETHYL
  5. MIRALAX [Concomitant]
     Active Substance: POLYETHYLENE GLYCOL 3350
  6. DOCUSATE SODIUM [Concomitant]
     Active Substance: DOCUSATE SODIUM
  7. FLONASE ALLERGY RELIEF [Concomitant]
     Active Substance: FLUTICASONE PROPIONATE
  8. FUROSEMIDE [Concomitant]
     Active Substance: FUROSEMIDE
  9. LISINOPRIL [Concomitant]
     Active Substance: LISINOPRIL
  10. DIGOXIN [Concomitant]
     Active Substance: DIGOXIN
  11. JARDIANCE [Concomitant]
     Active Substance: EMPAGLIFLOZIN
  12. METOPROLOL SUCCINATE [Concomitant]
     Active Substance: METOPROLOL SUCCINATE
  13. DULOXETINE HYDROCHLORIDE [Concomitant]
     Active Substance: DULOXETINE HYDROCHLORIDE
  14. SYNTHROID [Concomitant]
     Active Substance: LEVOTHYROXINE SODIUM
  15. COSOPT PF [Concomitant]
     Active Substance: DORZOLAMIDE HYDROCHLORIDE\TIMOLOL MALEATE
  16. LATANOPROST [Concomitant]
     Active Substance: LATANOPROST
  17. ARTIFICIAL TEARS [Concomitant]
  18. ASPIRIN [Concomitant]
     Active Substance: ASPIRIN
  19. HUMALOG [Concomitant]
     Active Substance: INSULIN LISPRO
  20. LANTUS [Concomitant]
     Active Substance: INSULIN GLARGINE
  21. RESTASIS [Concomitant]
     Active Substance: CYCLOSPORINE
  22. ROSUVASTATIN CALCIUM [Concomitant]
     Active Substance: ROSUVASTATIN CALCIUM
  23. FENOFIBRATE [Concomitant]
     Active Substance: FENOFIBRATE
  24. XARELTO [Concomitant]
     Active Substance: RIVAROXABAN
  25. FIBER THERAPY (CALCIUM POLYCARBOPHIL) [Concomitant]
     Active Substance: CALCIUM POLYCARBOPHIL
  26. VITAMINS [Concomitant]
     Active Substance: VITAMINS
  27. REPATHA [Concomitant]
     Active Substance: EVOLOCUMAB
  28. OZEMPIC [Concomitant]
     Active Substance: SEMAGLUTIDE
  29. VITAMIN D3 [Concomitant]
     Active Substance: CHOLECALCIFEROL
  30. DOXYCYCLINE [Concomitant]
     Active Substance: DOXYCYCLINE
  31. IRON BLOOD BUILDER SUPPLEMENT [Concomitant]

REACTIONS (2)
  - Eye irritation [Unknown]
  - Wrong technique in product usage process [Unknown]

NARRATIVE: CASE EVENT DATE: 20250116
